FAERS Safety Report 17870211 (Version 1)
Quarter: 2020Q2

REPORT INFORMATION
  Report Type: Spontaneous
  Country: US (occurrence: US)
  Receive Date: 20200608
  Receipt Date: 20200608
  Transmission Date: 20200714
  Serious: No
  Sender: FDA-Public Use
  Company Number: US-DRREDDYS-USA/USA/20/0123639

PATIENT
  Age: 75 Year
  Sex: Female
  Weight: 63 kg

DRUGS (1)
  1. OLANZAPINE ODT 10 MG [Suspect]
     Active Substance: OLANZAPINE
     Indication: SCHIZOPHRENIA
     Dosage: MONTH AND HALF AGO
     Route: 048

REACTIONS (3)
  - Product packaging difficult to open [Unknown]
  - Product packaging quantity issue [Unknown]
  - Overdose [Unknown]
